FAERS Safety Report 9764265 (Version 1)
Quarter: 2013Q4

REPORT INFORMATION
  Report Type: Spontaneous
  Country: US (occurrence: US)
  Receive Date: 20131217
  Receipt Date: 20131217
  Transmission Date: 20140711
  Serious: Yes (Hospitalization)
  Sender: FDA-Public Use
  Company Number: US-ROCHE-1320481

PATIENT
  Age: 19 Year
  Sex: Female

DRUGS (18)
  1. XOLAIR [Suspect]
     Indication: ASTHMA
     Route: 058
     Dates: start: 200809
  2. XOLAIR [Suspect]
     Route: 058
     Dates: start: 20130423
  3. XOLAIR [Suspect]
     Route: 058
     Dates: start: 20130103
  4. XOLAIR [Suspect]
     Route: 058
     Dates: start: 20130124
  5. XOLAIR [Suspect]
     Route: 058
     Dates: start: 20130214
  6. XOLAIR [Suspect]
     Route: 058
     Dates: start: 20130307
  7. XOLAIR [Suspect]
     Route: 058
     Dates: start: 20130328
  8. XOLAIR [Suspect]
     Route: 058
     Dates: start: 20130520
  9. XOLAIR [Suspect]
     Route: 058
     Dates: start: 20130610
  10. BIOTIN [Concomitant]
  11. PROAIR (UNITED STATES) [Concomitant]
     Indication: ASTHMA
     Dosage: UNK
     Route: 065
  12. ADVAIR [Concomitant]
     Indication: ASTHMA
     Dosage: UNK
     Route: 065
  13. FEXOFENADINE [Concomitant]
     Indication: HYPERSENSITIVITY
     Route: 048
  14. TYLENOL [Concomitant]
     Indication: PAIN
     Dosage: UNK
     Route: 065
  15. MOTRIN [Concomitant]
     Indication: PAIN
     Dosage: UNK
     Route: 065
  16. SINGULAIR [Concomitant]
     Indication: ASTHMA
     Dosage: UNK
     Route: 048
  17. MIRENA [Concomitant]
     Indication: CONTRACEPTION
     Route: 048
  18. MORPHINE [Concomitant]
     Route: 042
     Dates: start: 20130512, end: 201305

REACTIONS (1)
  - Appendicitis [Recovered/Resolved]
